FAERS Safety Report 4463003-7 (Version None)
Quarter: 2004Q3

REPORT INFORMATION
  Report Type: 
  Country: None (occurrence: None)
  Receive Date: 20040928
  Receipt Date: 20040914
  Transmission Date: 20050211
  Serious: Yes (Hospitalization)
  Sender: FDA-Public Use
  Company Number: 2004AP02335

PATIENT
  Age: 69 Year
  Sex: Male
  Weight: 49 kg

DRUGS (11)
  1. SEROQUEL [Suspect]
     Indication: SCHIZOPHRENIA
     Dosage: 300 MG DAILY PO
     Route: 048
     Dates: start: 20031222, end: 20040421
  2. SEROQUEL [Suspect]
     Indication: SCHIZOPHRENIA
     Dosage: 200 MG DAILY PO
     Route: 048
     Dates: start: 20031216, end: 20031221
  3. SEROQUEL [Suspect]
     Indication: SCHIZOPHRENIA
     Dosage: 100 MG DAILY PO
     Route: 048
     Dates: start: 20031209, end: 20031215
  4. SEROQUEL [Suspect]
     Indication: SCHIZOPHRENIA
     Dosage: 50 MG DAILY PO
     Route: 048
     Dates: start: 20031202, end: 20031208
  5. LODOPIN [Suspect]
     Indication: SCHIZOPHRENIA
     Dosage: 100 MG DAILY PO
     Route: 048
     Dates: start: 20031022, end: 20040421
  6. RISPERDAL [Suspect]
     Indication: SCHIZOPHRENIA
     Dosage: 3 MG DAILY PO
     Route: 048
     Dates: start: 20040210, end: 20040421
  7. TASMOLIN [Suspect]
     Indication: SCHIZOPHRENIA
     Dosage: 3 MG DAILY PO
     Route: 048
     Dates: start: 20040210, end: 20040421
  8. TASMOLIN [Suspect]
     Indication: SCHIZOPHRENIA
     Dosage: 2 MG DAILY PO
     Route: 048
     Dates: start: 20031022, end: 20040209
  9. ROHYPNOL [Suspect]
     Dosage: 2 MG DAILY PO
     Route: 048
     Dates: start: 20031022, end: 20040421
  10. VEGETAMIN [Suspect]
     Dates: start: 20031022, end: 20040421
  11. ZYPREXA [Concomitant]

REACTIONS (13)
  - ALANINE AMINOTRANSFERASE INCREASED [None]
  - ASPARTATE AMINOTRANSFERASE INCREASED [None]
  - ASTHENIA [None]
  - AZOTAEMIA [None]
  - BLOOD ALKALINE PHOSPHATASE INCREASED [None]
  - BLOOD LACTATE DEHYDROGENASE INCREASED [None]
  - HEPATIC FUNCTION ABNORMAL [None]
  - HYPOGLYCAEMIA [None]
  - HYPOTENSION [None]
  - PNEUMONIA ASPIRATION [None]
  - PROTEIN TOTAL DECREASED [None]
  - WEIGHT DECREASED [None]
  - WHITE BLOOD CELL COUNT DECREASED [None]
